FAERS Safety Report 23849891 (Version 1)
Quarter: 2024Q2

REPORT INFORMATION
  Report Type: Spontaneous
  Country: US (occurrence: US)
  Receive Date: 20240513
  Receipt Date: 20240513
  Transmission Date: 20240716
  Serious: No
  Sender: FDA-Public Use
  Company Number: US-009507513-2404USA007856

PATIENT
  Sex: Female

DRUGS (8)
  1. KEYTRUDA [Suspect]
     Active Substance: PEMBROLIZUMAB
     Indication: Lung neoplasm malignant
     Dosage: UNK
     Dates: start: 20240227
  2. KEYTRUDA [Suspect]
     Active Substance: PEMBROLIZUMAB
     Indication: Breast cancer
  3. SYNTHROID [Concomitant]
     Active Substance: LEVOTHYROXINE SODIUM
  4. ATORVASTATIN CALCIUM [Concomitant]
     Active Substance: ATORVASTATIN CALCIUM
  5. GKB LION^S MANE MUSHROOM [Concomitant]
  6. FISH OIL [Concomitant]
     Active Substance: FISH OIL
     Indication: Releasing factor agonist therapy
  7. TURMERIC + [Concomitant]
     Indication: Releasing factor agonist therapy
  8. LORATADINE [Concomitant]
     Active Substance: LORATADINE

REACTIONS (3)
  - Oral pain [Not Recovered/Not Resolved]
  - Eye swelling [Not Recovered/Not Resolved]
  - Vision blurred [Not Recovered/Not Resolved]

NARRATIVE: CASE EVENT DATE: 20240101
